FAERS Safety Report 4805751-2 (Version None)
Quarter: 2005Q4

REPORT INFORMATION
  Report Type: 
  Country: None (occurrence: None)
  Receive Date: 20051021
  Receipt Date: 20051010
  Transmission Date: 20060501
  Serious: Yes (Hospitalization, Disabling)
  Sender: FDA-Public Use
  Company Number: AU-ROCHE-420463

PATIENT
  Age: 51 Year
  Sex: Male

DRUGS (5)
  1. PEGASYS [Suspect]
     Route: 058
     Dates: start: 20050121, end: 20050708
  2. COPEGUS [Suspect]
     Dosage: DAILY.
     Route: 048
     Dates: start: 20050121, end: 20050708
  3. DIABEX [Concomitant]
     Route: 048
  4. NOVOMIX 30 [Concomitant]
     Dosage: REPORTED AS NOVOMIX FLEX PEN.
     Route: 058
  5. CIPRAMIL [Concomitant]
     Indication: DEPRESSION
     Route: 048
     Dates: start: 20050203

REACTIONS (1)
  - CENTRAL PONTINE MYELINOLYSIS [None]
